FAERS Safety Report 13200537 (Version 1)
Quarter: 2017Q1

REPORT INFORMATION
  Report Type: Report from Study
  Country: US (occurrence: US)
  Receive Date: 20170208
  Receipt Date: 20170208
  Transmission Date: 20170428
  Serious: Yes (Death, Other)
  Sender: FDA-Public Use
  Company Number: US-MYLANLABS-2017M1007588

PATIENT

DRUGS (6)
  1. METHOTREXATE. [Concomitant]
     Active Substance: METHOTREXATE
     Dosage: 10MG/ME2 ON DAYS 3, 6 AND 11
     Route: 042
  2. PENTOSTATIN. [Suspect]
     Active Substance: PENTOSTATIN
     Indication: ACUTE GRAFT VERSUS HOST DISEASE
     Dosage: 1.5 MG/ME2/DAY, OVER 20-30 MIN WITH 1L HYDRATION ON DAYS 1-3 OF EACH 14DAY CYCLE
     Route: 041
  3. CICLOSPORIN [Concomitant]
     Active Substance: CYCLOSPORINE
     Indication: ACUTE GRAFT VERSUS HOST DISEASE
     Dosage: 3MG/KG/DAY ON DAY-1
     Route: 042
  4. METHOTREXATE. [Concomitant]
     Active Substance: METHOTREXATE
     Indication: ACUTE GRAFT VERSUS HOST DISEASE
     Dosage: 15MG/ME2 ON DAY 1
     Route: 042
  5. COTRIMOXAZOLE [Concomitant]
     Active Substance: SULFAMETHOXAZOLE\TRIMETHOPRIM
     Indication: ACUTE GRAFT VERSUS HOST DISEASE
     Dosage: 1600/800MG TWICE DAILY, TWICE WEEKLY
     Route: 042
  6. ACICLOVIR [Concomitant]
     Active Substance: ACYCLOVIR
     Indication: ACUTE GRAFT VERSUS HOST DISEASE
     Dosage: 200-400 MG 3 TIMES DAILY
     Route: 042

REACTIONS (2)
  - Condition aggravated [Fatal]
  - Acute graft versus host disease in liver [Fatal]
